FAERS Safety Report 4748586-1 (Version None)
Quarter: 2005Q3

REPORT INFORMATION
  Report Type: 
  Country: None (occurrence: None)
  Receive Date: 20050819
  Receipt Date: 20050811
  Transmission Date: 20060218
  Serious: Yes (Hospitalization, Other)
  Sender: FDA-Public Use
  Company Number: EMADSS2003002351

PATIENT
  Age: 77 Year
  Sex: Male

DRUGS (19)
  1. REMICADE [Suspect]
     Route: 041
  2. REMICADE [Suspect]
     Route: 041
  3. REMICADE [Suspect]
     Route: 041
  4. REMICADE [Suspect]
     Route: 041
  5. REMICADE [Suspect]
     Route: 041
  6. REMICADE [Suspect]
     Route: 041
  7. REMICADE [Suspect]
     Route: 041
  8. REMICADE [Suspect]
     Route: 041
  9. REMICADE [Suspect]
     Indication: RHEUMATOID ARTHRITIS
     Route: 041
  10. CORTANCYL [Suspect]
     Indication: DRUG USE FOR UNKNOWN INDICATION
     Route: 065
  11. DIAMICRON [Concomitant]
     Route: 065
  12. DI-ANTALVIC [Concomitant]
     Route: 065
  13. DI-ANTALVIC [Concomitant]
     Route: 065
  14. OROCAL [Concomitant]
     Route: 065
  15. OMEPRAZOLE [Concomitant]
     Route: 065
  16. SPECIAFOLDINE [Concomitant]
     Route: 065
  17. TARDYFERON B9 [Concomitant]
     Route: 065
  18. COZAAR [Concomitant]
     Route: 065
  19. INSULIN [Concomitant]
     Route: 065

REACTIONS (3)
  - ATRIOVENTRICULAR BLOCK [None]
  - CARDIAC FAILURE [None]
  - NECK PAIN [None]
